FAERS Safety Report 14488370 (Version 1)
Quarter: 2018Q1

REPORT INFORMATION
  Report Type: Spontaneous
  Country: CA (occurrence: CA)
  Receive Date: 20180205
  Receipt Date: 20180205
  Transmission Date: 20180509
  Serious: Yes (Other)
  Sender: FDA-Public Use
  Company Number: CA-ALLERGAN-1805665US

PATIENT
  Age: 77 Year
  Sex: Female

DRUGS (9)
  1. MAXALT [Concomitant]
     Active Substance: RIZATRIPTAN BENZOATE
  2. PULMOCARE [Concomitant]
  3. ESTRING [Concomitant]
     Active Substance: ESTRADIOL
  4. CRIZOTINIB [Concomitant]
     Active Substance: CRIZOTINIB
  5. CORTIMENT (HYDROCORTISONE) [Concomitant]
     Active Substance: HYDROCORTISONE
  6. IRON [Concomitant]
     Active Substance: IRON
  7. MAXERAN [Concomitant]
     Active Substance: METOCLOPRAMIDE HYDROCHLORIDE
  8. BOTOX [Suspect]
     Active Substance: ONABOTULINUMTOXINA
     Indication: PRODUCT USED FOR UNKNOWN INDICATION
     Dosage: UNK UNK, SINGLE
     Route: 030
  9. TYLENOL [Concomitant]
     Active Substance: ACETAMINOPHEN

REACTIONS (2)
  - Lung neoplasm malignant [Unknown]
  - Eyelid ptosis [Unknown]
